FAERS Safety Report 15713708 (Version 1)
Quarter: 2018Q4

REPORT INFORMATION
  Report Type: Spontaneous
  Country: DE (occurrence: DE)
  Receive Date: 20181212
  Receipt Date: 20181212
  Transmission Date: 20190205
  Serious: Yes (Hospitalization)
  Sender: FDA-Public Use
  Company Number: DE-PFIZER INC-2018505499

PATIENT
  Age: 53 Year
  Sex: Male

DRUGS (5)
  1. QUILONUM RETARD [Suspect]
     Active Substance: LITHIUM CARBONATE
     Dosage: 3 DF, 1X/DAY
     Dates: end: 20000309
  2. TAVOR (LORAZEPAM) [Concomitant]
     Active Substance: LORAZEPAM
     Dosage: 1.5 MG, 1X/DAY
  3. RISPERDAL [Concomitant]
     Active Substance: RISPERIDONE
     Dosage: 3 MG, 1X/DAY (EINNAHME SEIT 6 TAGEN)
  4. ZOLOFT [Suspect]
     Active Substance: SERTRALINE HYDROCHLORIDE
     Dosage: 100 MG, 1X/DAY (ADMINISTRATION SINCE 14 DAYS)
  5. LAMICTAL [Concomitant]
     Active Substance: LAMOTRIGINE
     Dosage: 200 MG, 1X/DAY (DOSE INCREASED FOR 2 MONTHS)

REACTIONS (5)
  - Muscle rigidity [Recovered/Resolved]
  - Ataxia [Recovered/Resolved]
  - Asthenia [Recovered/Resolved]
  - Gait disturbance [Recovered/Resolved]
  - Myoclonus [Recovered/Resolved]

NARRATIVE: CASE EVENT DATE: 20000309
